FAERS Safety Report 4598088-0 (Version None)
Quarter: 2005Q1

REPORT INFORMATION
  Report Type: 
  Country: None (occurrence: None)
  Receive Date: 20050304
  Receipt Date: 20050221
  Transmission Date: 20050727
  Serious: Yes (Other)
  Sender: FDA-Public Use
  Company Number: GB-ABBOTT-05P-167-0291612-00

PATIENT
  Age: 35 Year
  Sex: Female

DRUGS (3)
  1. DEPAKOTE [Suspect]
     Indication: BIPOLAR DISORDER
     Dates: start: 20000101
  2. DEPAKOTE [Suspect]
     Dosage: DOSE REDUCED
  3. CHLORPROMAZINE HYDROCHLORIDE [Concomitant]
     Indication: DRUG USE FOR UNKNOWN INDICATION
     Dosage: LOW DOSE
     Route: 065

REACTIONS (3)
  - BLOOD FIBRINOGEN INCREASED [None]
  - HEPATIC ENZYME INCREASED [None]
  - PROTHROMBIN LEVEL INCREASED [None]
